FAERS Safety Report 21731624 (Version 6)
Quarter: 2024Q1

REPORT INFORMATION
  Report Type: Report from Study
  Country: IT (occurrence: IT)
  Receive Date: 20221215
  Receipt Date: 20240321
  Transmission Date: 20240409
  Serious: Yes (Death, Hospitalization, Other)
  Sender: FDA-Public Use
  Company Number: IT-ABBVIE-4206176

PATIENT
  Age: 67 Year
  Sex: Male
  Weight: 52 kg

DRUGS (6)
  1. VENETOCLAX [Suspect]
     Active Substance: VENETOCLAX
     Indication: Product used for unknown indication
     Dosage: 100 MILLIGRAM
     Route: 048
  2. MEROPENEM [Concomitant]
     Active Substance: MEROPENEM
     Indication: Antibiotic therapy
     Dosage: 2 GRAMX3
     Dates: start: 20221111
  3. EPINEPHRINE [Concomitant]
     Active Substance: EPINEPHRINE
     Indication: Product used for unknown indication
     Dosage: DRUG INFUSED AT ANOTHER HOSPITAL
     Dates: start: 20221111, end: 20221113
  4. HYDROCORTISONE [Concomitant]
     Active Substance: HYDROCORTISONE
     Indication: Steroid therapy
     Dosage: 50MGX3
     Dates: start: 20221111
  5. DECITABINE [Suspect]
     Active Substance: DECITABINE
     Indication: Product used for unknown indication
     Route: 065
  6. NOREPINEPHRINE [Concomitant]
     Active Substance: NOREPINEPHRINE\NOREPINEPHRINE BITARTRATE
     Indication: Angiopathy
     Dosage: DRUG INFUSED AT ANOTHER HOSPITAL
     Dates: start: 20221111

REACTIONS (19)
  - Post transplant lymphoproliferative disorder [Fatal]
  - Encephalopathy [Recovered/Resolved with Sequelae]
  - Septic shock [Recovered/Resolved with Sequelae]
  - Escherichia infection [Recovered/Resolved with Sequelae]
  - Escherichia sepsis [Recovered/Resolved with Sequelae]
  - Pneumonia [Recovered/Resolved with Sequelae]
  - Staphylococcal sepsis [Recovered/Resolved with Sequelae]
  - Deep vein thrombosis [Recovered/Resolved with Sequelae]
  - Cytomegalovirus infection reactivation [Recovered/Resolved with Sequelae]
  - Epstein-Barr virus infection reactivation [Recovered/Resolved with Sequelae]
  - Central venous catheterisation [Unknown]
  - Acute kidney injury [Recovered/Resolved with Sequelae]
  - Pseudomonas infection [Recovered/Resolved]
  - Cell death [Fatal]
  - Gastrointestinal haemorrhage [Fatal]
  - Gastrointestinal neoplasm [Fatal]
  - Blood creatinine increased [Unknown]
  - Acute myeloid leukaemia [Unknown]
  - Myelodysplastic syndrome [Unknown]

NARRATIVE: CASE EVENT DATE: 20221111
